FAERS Safety Report 6804325-1 (Version None)
Quarter: 2010Q2

REPORT INFORMATION
  Report Type: 
  Country: None (occurrence: None)
  Receive Date: 20100628
  Receipt Date: 20070301
  Transmission Date: 20101027
  Serious: No
  Sender: FDA-Public Use
  Company Number: US-PFIZER INC-2007016646

PATIENT
  Sex: Female
  Weight: 90.72 kg

DRUGS (3)
  1. XALATAN [Suspect]
     Indication: ANGLE CLOSURE GLAUCOMA
     Route: 047
     Dates: start: 20050901, end: 20070222
  2. TRAZODONE HYDROCHLORIDE [Concomitant]
  3. CYCLOBENZAPRINE [Concomitant]

REACTIONS (1)
  - SKIN DISCOLOURATION [None]
